FAERS Safety Report 10362621 (Version 1)
Quarter: 2014Q3

REPORT INFORMATION
  Report Type: Spontaneous
  Country: US (occurrence: None)
  Receive Date: 20140804
  Receipt Date: 20140804
  Transmission Date: 20150326
  Serious: No
  Sender: FDA-Public Use
  Company Number: None

PATIENT
  Age: 61 Year
  Sex: Female

DRUGS (1)
  1. ENBREL [Suspect]
     Active Substance: ETANERCEPT
     Indication: PSORIASIS
     Route: 058
     Dates: start: 20140415, end: 20140703

REACTIONS (4)
  - Eyelid oedema [None]
  - Erythema of eyelid [None]
  - Eyelid irritation [None]
  - Eyelids pruritus [None]

NARRATIVE: CASE EVENT DATE: 20140701
